FAERS Safety Report 24293262 (Version 1)
Quarter: 2024Q3

REPORT INFORMATION
  Report Type: Spontaneous
  Country: US (occurrence: US)
  Receive Date: 20240906
  Receipt Date: 20240906
  Transmission Date: 20241017
  Serious: Yes (Other)
  Sender: FRESENIUS KABI
  Company Number: US-FreseniusKabi-FK202413455

PATIENT
  Age: 21 Year
  Sex: Male

DRUGS (4)
  1. BLEOMYCIN [Suspect]
     Active Substance: BLEOMYCIN SULFATE
     Indication: Germ cell cancer metastatic
  2. ETOPOSIDE [Suspect]
     Active Substance: ETOPOSIDE
     Indication: Germ cell cancer metastatic
  3. CISPLATIN [Suspect]
     Active Substance: CISPLATIN
     Indication: Germ cell cancer metastatic
  4. ATENOLOL [Concomitant]
     Active Substance: ATENOLOL
     Indication: Sinus tachycardia

REACTIONS (2)
  - Paraneoplastic syndrome [Recovered/Resolved]
  - Hyperthyroidism [Recovered/Resolved]
